FAERS Safety Report 7450139-1 (Version None)
Quarter: 2011Q2

REPORT INFORMATION
  Report Type: 
  Country: None (occurrence: None)
  Receive Date: 20110428
  Receipt Date: 20110428
  Transmission Date: 20111010
  Serious: Yes (Death)
  Sender: FDA-Public Use
  Company Number: None

PATIENT
  Age: 80 Year
  Sex: Female

DRUGS (5)
  1. HYDROCODONE BITARTRATE AND ACETAMINOPHEN [Concomitant]
  2. EXAZEPAM [Concomitant]
  3. REVLIMID [Suspect]
     Indication: MYELODYSPLASTIC SYNDROME
     Dosage: 5 MG DAILY ORALLY
     Route: 048
     Dates: start: 20101101
  4. METFORMIN HCL [Concomitant]
  5. LEVOTHYROXINE SODIUM [Concomitant]

REACTIONS (4)
  - ANAEMIA [None]
  - HYPOTHYROIDISM [None]
  - TYPE 2 DIABETES MELLITUS [None]
  - LICHEN SCLEROSUS [None]
